FAERS Safety Report 8256309-7 (Version None)
Quarter: 2012Q2

REPORT INFORMATION
  Report Type: 
  Country: None (occurrence: None)
  Receive Date: 20120403
  Receipt Date: 20120326
  Transmission Date: 20120825
  Serious: Yes (Other)
  Sender: FDA-Public Use
  Company Number: US-BAYER-2011-035581

PATIENT
  Age: 30 Year
  Sex: Female
  Weight: 86.16 kg

DRUGS (5)
  1. YASMIN [Suspect]
     Indication: MENSTRUAL CYCLE MANAGEMENT
     Dosage: UNK
     Dates: start: 20060301, end: 20060601
  2. IBUPROFEN [Concomitant]
     Dosage: 800 MG, UNK
     Dates: start: 20060427
  3. PENICILLIN VK [Concomitant]
     Dosage: 500 MG, UNK
     Dates: start: 20060425
  4. YASMIN [Suspect]
     Indication: PREMENSTRUAL SYNDROME
  5. HYDROCODONE BITARTRATE AND ACETAMINOPHEN [Concomitant]
     Dosage: 500 MG, UNK
     Dates: start: 20060425

REACTIONS (5)
  - DEEP VEIN THROMBOSIS [None]
  - THROMBOPHLEBITIS [None]
  - EMOTIONAL DISTRESS [None]
  - PAIN [None]
  - INJURY [None]
